FAERS Safety Report 4577550-0 (Version None)
Quarter: 2005Q1

REPORT INFORMATION
  Report Type: 
  Country: None (occurrence: None)
  Receive Date: 20050208
  Receipt Date: 20050126
  Transmission Date: 20050727
  Serious: Yes (Hospitalization)
  Sender: FDA-Public Use
  Company Number: 2005021159

PATIENT
  Sex: 0

DRUGS (1)
  1. ZIPRASIDONE                           (ZIPRASIDONE) [Suspect]
     Indication: SCHIZOPHRENIA

REACTIONS (4)
  - CONDITION AGGRAVATED [None]
  - SCHIZOPHRENIA [None]
  - TACHYCARDIA [None]
  - VENTRICULAR ARRHYTHMIA [None]
